FAERS Safety Report 13995151 (Version 1)
Quarter: 2017Q3

REPORT INFORMATION
  Report Type: Spontaneous
  Country: CN (occurrence: CN)
  Receive Date: 20170921
  Receipt Date: 20170921
  Transmission Date: 20171128
  Serious: Yes (Hospitalization, Other)
  Sender: FDA-Public Use
  Company Number: CN-BRISTOL-MYERS SQUIBB COMPANY-BMS-2017-084593

PATIENT
  Age: 53 Year
  Sex: Male
  Weight: 65 kg

DRUGS (1)
  1. ENTECAVIR. [Suspect]
     Active Substance: ENTECAVIR
     Indication: HEPATITIS B
     Dosage: 0.5 MG, QD
     Route: 048
     Dates: start: 20170709

REACTIONS (1)
  - Hepatic cirrhosis [Recovering/Resolving]

NARRATIVE: CASE EVENT DATE: 20170913
